FAERS Safety Report 4658915-5 (Version None)
Quarter: 2005Q2

REPORT INFORMATION
  Report Type: 
  Country: None (occurrence: None)
  Receive Date: 20050509
  Receipt Date: 20050502
  Transmission Date: 20051028
  Serious: No
  Sender: FDA-Public Use
  Company Number: USA-2005-0019890

PATIENT
  Age: 64 Year
  Sex: Female

DRUGS (2)
  1. CEFDITOREN PIVOXIL (SIMILAR TO NDA 21-222) (CEFDITOREN PIVOXIL) [Suspect]
     Indication: INFECTION PROPHYLAXIS
     Dosage: 100 MG, DAILY, ORAL
     Route: 048
     Dates: start: 20050415, end: 20050415
  2. ENTERONON (LACTOBACILLUS ACIDOPHILUS) [Concomitant]

REACTIONS (5)
  - DRUG HYPERSENSITIVITY [None]
  - ERYTHEMA [None]
  - PHOTODERMATOSIS [None]
  - PRURITUS [None]
  - SWELLING FACE [None]
